FAERS Safety Report 14019111 (Version 1)
Quarter: 2017Q3

REPORT INFORMATION
  Report Type: Spontaneous
  Country: FR (occurrence: FR)
  Receive Date: 20170928
  Receipt Date: 20170928
  Transmission Date: 20171128
  Serious: Yes (Hospitalization)
  Sender: FDA-Public Use
  Company Number: FR-SUN PHARMACEUTICAL INDUSTRIES LTD-2016R1-119202

PATIENT
  Age: 33 Year
  Sex: Female

DRUGS (8)
  1. BACLOFEN. [Suspect]
     Active Substance: BACLOFEN
     Dosage: 240 MG, DAILY
     Route: 065
     Dates: start: 20150206
  2. BACLOFEN. [Suspect]
     Active Substance: BACLOFEN
     Dosage: 210 MG, DAILY
     Route: 065
     Dates: start: 20150211
  3. BACLOFEN. [Suspect]
     Active Substance: BACLOFEN
     Dosage: 180 MG, DAILY
     Route: 065
     Dates: start: 20150216
  4. BACLOFEN. [Suspect]
     Active Substance: BACLOFEN
     Indication: PRODUCT USED FOR UNKNOWN INDICATION
     Dosage: 60 MG, DAILY
     Route: 065
     Dates: start: 201403
  5. ESCITALOPRAM [Concomitant]
     Active Substance: ESCITALOPRAM OXALATE
     Dosage: 20 MG
     Route: 065
     Dates: start: 201408
  6. BACLOFEN. [Suspect]
     Active Substance: BACLOFEN
     Dosage: 150 MG, DAILY
     Route: 065
     Dates: start: 20150223
  7. ESCITALOPRAM [Concomitant]
     Active Substance: ESCITALOPRAM OXALATE
     Indication: PRODUCT USED FOR UNKNOWN INDICATION
     Dosage: 10 MG
     Route: 065
     Dates: start: 2014
  8. BACLOFEN. [Suspect]
     Active Substance: BACLOFEN
     Dosage: 270 MG, DAILY
     Route: 065
     Dates: start: 201407

REACTIONS (2)
  - Mania [Recovered/Resolved]
  - Alcoholism [Unknown]

NARRATIVE: CASE EVENT DATE: 201501
